FAERS Safety Report 5562416-X (Version None)
Quarter: 2007Q4

REPORT INFORMATION
  Report Type: 
  Country: None (occurrence: None)
  Receive Date: 20071215
  Receipt Date: 20070125
  Transmission Date: 20080405
  Serious: No
  Sender: FDA-Public Use
  Company Number: US-AMGEN-US208654

PATIENT
  Sex: Female
  Weight: 54.5 kg

DRUGS (1)
  1. ENBREL [Suspect]
     Indication: PSORIATIC ARTHROPATHY
     Route: 058
     Dates: start: 20061208, end: 20070131

REACTIONS (3)
  - INJECTION SITE PAIN [None]
  - INJECTION SITE RASH [None]
  - RASH [None]
